FAERS Safety Report 10865721 (Version 3)
Quarter: 2015Q2

REPORT INFORMATION
  Report Type: Spontaneous
  Country: US (occurrence: US)
  Receive Date: 20150224
  Receipt Date: 20150416
  Transmission Date: 20150821
  Serious: Yes (Other)
  Sender: FDA-Public Use
  Company Number: US-GLAXOSMITHKLINE-US2015GSK020592

PATIENT
  Sex: Female

DRUGS (2)
  1. BENLYSTA [Suspect]
     Active Substance: BELIMUMAB
     Dosage: UNK
     Dates: start: 2015
  2. BENLYSTA [Suspect]
     Active Substance: BELIMUMAB
     Indication: SYSTEMIC LUPUS ERYTHEMATOSUS
     Dosage: UNK
     Route: 042
     Dates: end: 2014

REACTIONS (7)
  - Scab [Unknown]
  - Constipation [Unknown]
  - Vaginal mucosal blistering [Unknown]
  - Dysuria [Unknown]
  - Vulvovaginal pain [Unknown]
  - Adverse drug reaction [Unknown]
  - Rectal haemorrhage [Unknown]
